FAERS Safety Report 19709898 (Version 1)
Quarter: 2021Q3

REPORT INFORMATION
  Report Type: Report from Study
  Country: US (occurrence: US)
  Receive Date: 20210816
  Receipt Date: 20210816
  Transmission Date: 20211014
  Serious: Yes (Other)
  Sender: FDA-Public Use
  Company Number: US-TAKEDA-2021TUS049267

PATIENT
  Sex: Female

DRUGS (1)
  1. HUMAN NORMAL IMMUNOGLOBULIN; LIQUID [Suspect]
     Active Substance: HUMAN IMMUNOGLOBULIN G
     Indication: PRIMARY IMMUNODEFICIENCY SYNDROME
     Dosage: UNK UNK, Q2WEEKS
     Route: 042
     Dates: start: 202103

REACTIONS (3)
  - Migraine [Not Recovered/Not Resolved]
  - Abortion spontaneous [Unknown]
  - Inappropriate schedule of product administration [Not Recovered/Not Resolved]
